FAERS Safety Report 6382201-9 (Version None)
Quarter: 2009Q3

REPORT INFORMATION
  Report Type: 
  Country: None (occurrence: None)
  Receive Date: 20090930
  Receipt Date: 20090909
  Transmission Date: 20100115
  Serious: Yes (Hospitalization)
  Sender: FDA-Public Use
  Company Number: US-ASTRAZENECA-2009SE06692

PATIENT
  Age: 83 Year
  Sex: Male
  Weight: 160 kg

DRUGS (17)
  1. CRESTOR [Suspect]
     Indication: CORONARY ARTERY DISEASE
     Route: 048
     Dates: start: 20090427, end: 20090725
  2. AMLIODIPINE [Concomitant]
  3. AVAPRO [Concomitant]
  4. METFORMIN HYDROCHLORIDE [Concomitant]
     Route: 048
  5. FUROSOMIDE [Concomitant]
  6. LISINOPRIL [Concomitant]
  7. DIGOXIN [Concomitant]
  8. FLOMAX [Concomitant]
  9. WARFARIN [Concomitant]
  10. NOVOLIN R [Concomitant]
     Dosage: 70/30
     Route: 058
  11. TESTOSTERONE [Concomitant]
     Route: 030
  12. VITAMIN B-12 [Concomitant]
  13. CALCIUM [Concomitant]
  14. FISH OIL [Concomitant]
  15. GLUCOSAMINE/CHONDROITIN [Concomitant]
  16. IRON [Concomitant]
  17. MULTI-VITAMIN [Concomitant]

REACTIONS (2)
  - RHABDOMYOLYSIS [None]
  - SECONDARY ADRENOCORTICAL INSUFFICIENCY [None]
